FAERS Safety Report 5411340-1 (Version None)
Quarter: 2007Q3

REPORT INFORMATION
  Report Type: 
  Country: None (occurrence: None)
  Receive Date: 20070810
  Receipt Date: 20070807
  Transmission Date: 20080115
  Serious: Yes (Hospitalization)
  Sender: FDA-Public Use
  Company Number: GBWYE147408AUG07

PATIENT
  Sex: Female

DRUGS (1)
  1. EFFEXOR XR [Suspect]
     Route: 048
     Dates: start: 20070706

REACTIONS (2)
  - FEELING ABNORMAL [None]
  - INTENTIONAL SELF-INJURY [None]
